FAERS Safety Report 5775776-1 (Version None)
Quarter: 2008Q2

REPORT INFORMATION
  Report Type: 
  Country: None (occurrence: None)
  Receive Date: 20080617
  Receipt Date: 20080527
  Transmission Date: 20081010
  Serious: No
  Sender: FDA-Public Use
  Company Number: US-BOEHRINGER INGELHEIM GMBH, GERMANY-2008-BP-06674BP

PATIENT
  Age: 78 Year
  Sex: Female
  Weight: 64 kg

DRUGS (11)
  1. CATAPRES-TTS-1 [Suspect]
     Indication: CARDIAC ASSISTANCE DEVICE USER
     Route: 061
     Dates: start: 20080409, end: 20080428
  2. CATAPRES-TTS-1 [Suspect]
     Indication: BLOOD PRESSURE MANAGEMENT
  3. HYDROCHLOROTHIAZIDE [Concomitant]
  4. METOPROLOL [Concomitant]
  5. HYDRALAZINE HCL [Concomitant]
  6. PLAVIX [Concomitant]
  7. CLONIDINE [Concomitant]
  8. LEXAPRO [Concomitant]
  9. NORCO [Concomitant]
  10. PRILOSEC [Concomitant]
  11. HYDROXYZINE [Concomitant]

REACTIONS (3)
  - APPLICATION SITE BURN [None]
  - DERMATITIS CONTACT [None]
  - ERYTHEMA [None]
